FAERS Safety Report 16683542 (Version 1)
Quarter: 2019Q3

REPORT INFORMATION
  Report Type: Spontaneous
  Country: US (occurrence: US)
  Receive Date: 20190624
  Receipt Date: 20190624
  Transmission Date: 20191004
  Serious: No
  Sender: FDA-Public Use
  Company Number: None

PATIENT
  Age: 50 Year
  Sex: Female

DRUGS (1)
  1. STELARA [Suspect]
     Active Substance: USTEKINUMAB
     Indication: PSORIATIC ARTHROPATHY
     Dates: start: 20190614

REACTIONS (6)
  - Stomatitis [None]
  - Arthralgia [None]
  - Influenza like illness [None]
  - Fatigue [None]
  - Pain [None]
  - Muscle spasms [None]

NARRATIVE: CASE EVENT DATE: 20190615
